FAERS Safety Report 11054589 (Version 1)
Quarter: 2015Q2

REPORT INFORMATION
  Report Type: Spontaneous
  Country: IT (occurrence: IT)
  Receive Date: 20150422
  Receipt Date: 20150422
  Transmission Date: 20150821
  Serious: Yes (Disabling)
  Sender: FDA-Public Use
  Company Number: IT-TEVA-556284ISR

PATIENT
  Age: 82 Year
  Sex: Female

DRUGS (2)
  1. DIBASE  100.000 IU/ML [Concomitant]
     Indication: VITAMIN D DEFICIENCY
     Dosage: 100 LU, IN THOUSANDS
     Route: 048
  2. ALENDRONATE SODIUM. [Suspect]
     Active Substance: ALENDRONATE SODIUM
     Indication: METASTASES TO BONE
     Dosage: 70 MG WEEKLY
     Route: 048
     Dates: start: 19900501, end: 20090501

REACTIONS (3)
  - Fistula [Unknown]
  - Swelling [Unknown]
  - Pain in jaw [Unknown]

NARRATIVE: CASE EVENT DATE: 20131201
